FAERS Safety Report 18260295 (Version 1)
Quarter: 2020Q3

REPORT INFORMATION
  Report Type: Spontaneous
  Country: US (occurrence: US)
  Receive Date: 20200914
  Receipt Date: 20200914
  Transmission Date: 20201103
  Serious: Yes (Life-Threatening, Hospitalization)
  Sender: FDA-Public Use
  Company Number: US-ROCHE-2661450

PATIENT
  Age: 77 Year
  Sex: Male

DRUGS (3)
  1. TYLENOL [Concomitant]
     Active Substance: ACETAMINOPHEN
  2. XELODA [Suspect]
     Active Substance: CAPECITABINE
     Indication: GASTRIC NEOPLASM
     Route: 048
     Dates: start: 202004
  3. MOTRIN [Concomitant]
     Active Substance: IBUPROFEN

REACTIONS (6)
  - Transient ischaemic attack [Unknown]
  - Intentional product use issue [Unknown]
  - Off label use [Unknown]
  - Headache [Unknown]
  - Gait disturbance [Unknown]
  - Weight decreased [Unknown]

NARRATIVE: CASE EVENT DATE: 20200817
